FAERS Safety Report 9412148 (Version 1)
Quarter: 2013Q3

REPORT INFORMATION
  Report Type: Spontaneous
  Country: US (occurrence: None)
  Receive Date: 20130719
  Receipt Date: 20130719
  Transmission Date: 20140515
  Serious: Yes (Other)
  Sender: FDA-Public Use
  Company Number: None

PATIENT
  Age: 30 Year
  Sex: Female
  Weight: 63.5 kg

DRUGS (2)
  1. VENLAFAXIN XR [Suspect]
     Indication: ANXIETY DISORDER
     Dosage: 1X IN MORNING.
     Route: 048
     Dates: start: 20130315, end: 20130401
  2. CLONAZEPAM [Concomitant]

REACTIONS (5)
  - Withdrawal syndrome [None]
  - Post gastric surgery syndrome [None]
  - Drug level increased [None]
  - Adverse drug reaction [None]
  - Product quality issue [None]
